FAERS Safety Report 6618848-1 (Version None)
Quarter: 2010Q1

REPORT INFORMATION
  Report Type: 
  Country: None (occurrence: None)
  Receive Date: 20100305
  Receipt Date: 20100305
  Transmission Date: 20100710
  Serious: Yes (Other)
  Sender: FDA-Public Use
  Company Number: None

PATIENT
  Age: 26 Year
  Sex: Male
  Weight: 60.782 kg

DRUGS (1)
  1. MIRENA [Suspect]
     Indication: INTRA-UTERINE CONTRACEPTIVE DEVICE
     Dosage: INSERTED MARCH 2009
     Dates: start: 20090301

REACTIONS (13)
  - ABDOMINAL DISTENSION [None]
  - BACK PAIN [None]
  - COITAL BLEEDING [None]
  - CYSTITIS [None]
  - DIZZINESS [None]
  - DYSPAREUNIA [None]
  - FATIGUE [None]
  - FUNGAL INFECTION [None]
  - HAEMORRHAGE [None]
  - HEADACHE [None]
  - NAUSEA [None]
  - NIGHT SWEATS [None]
  - WEIGHT INCREASED [None]
